FAERS Safety Report 8185109-1 (Version None)
Quarter: 2012Q1

REPORT INFORMATION
  Report Type: 
  Country: None (occurrence: None)
  Receive Date: 20120305
  Receipt Date: 20120224
  Transmission Date: 20120608
  Serious: No
  Sender: FDA-Public Use
  Company Number: US-PFIZER INC-2012019751

PATIENT
  Sex: Female

DRUGS (3)
  1. EFFEXOR [Suspect]
     Dosage: 37MG
     Dates: end: 20110201
  2. EFFEXOR XR [Suspect]
     Indication: DEPRESSION
     Dosage: 225 MG, 1X/DAY
     Route: 048
     Dates: start: 20100210, end: 20101212
  3. EFFEXOR [Suspect]
     Indication: DEPRESSION
     Dosage: 75MG
     Route: 048
     Dates: start: 20101213

REACTIONS (1)
  - FEMALE ORGASMIC DISORDER [None]
